FAERS Safety Report 14062324 (Version 1)
Quarter: 2017Q4

REPORT INFORMATION
  Report Type: Spontaneous
  Country: US (occurrence: US)
  Receive Date: 20171009
  Receipt Date: 20171009
  Transmission Date: 20180321
  Serious: No
  Sender: FDA-Public Use
  Company Number: US-PFIZER INC-2017434391

PATIENT
  Age: 52 Year
  Sex: Female
  Weight: 73 kg

DRUGS (2)
  1. ESTRING [Suspect]
     Active Substance: ESTRADIOL
     Indication: HYSTERECTOMY
     Dosage: 1 DF, EVERY 3 MONTHS
     Route: 067
     Dates: start: 20170928
  2. LEXAPRO [Concomitant]
     Active Substance: ESCITALOPRAM OXALATE
     Indication: ANXIETY
     Dosage: 10 MG, 1X/DAY
     Route: 048

REACTIONS (2)
  - Product quality issue [Unknown]
  - Vulvovaginal pain [Unknown]

NARRATIVE: CASE EVENT DATE: 20170928
